FAERS Safety Report 6073348-5 (Version None)
Quarter: 2009Q1

REPORT INFORMATION
  Report Type: 
  Country: None (occurrence: None)
  Receive Date: 20090211
  Receipt Date: 20090130
  Transmission Date: 20090719
  Serious: Yes (Other)
  Sender: FDA-Public Use
  Company Number: CA-ROCHE-611802

PATIENT
  Age: 60 Year
  Sex: Female

DRUGS (2)
  1. XELODA [Suspect]
     Indication: DRUG USE FOR UNKNOWN INDICATION
     Dosage: DOSE: 2 X OD
     Route: 048
  2. DILANTIN [Concomitant]
     Route: 048

REACTIONS (6)
  - CONVULSION [None]
  - DECREASED APPETITE [None]
  - DRUG LEVEL DECREASED [None]
  - FALL [None]
  - MOOD SWINGS [None]
  - SOMNOLENCE [None]
